FAERS Safety Report 8611692-5 (Version None)
Quarter: 2012Q3

REPORT INFORMATION
  Report Type: 
  Country: None (occurrence: None)
  Receive Date: 20120822
  Receipt Date: 20120813
  Transmission Date: 20120928
  Serious: Yes (Hospitalization)
  Sender: FDA-Public Use
  Company Number: US-ROCHE-1018508

PATIENT
  Sex: Male
  Weight: 89.9 kg

DRUGS (30)
  1. OXALIPLATIN [Suspect]
     Indication: OESOPHAGEAL CANCER METASTATIC
     Dates: start: 20110517, end: 20111115
  2. ACTOS [Concomitant]
  3. LORAZEPAM [Concomitant]
  4. DTO [Concomitant]
  5. PRILOSEC [Concomitant]
  6. RITALIN [Concomitant]
  7. TOPROL-XL [Concomitant]
  8. AVASTIN [Suspect]
     Indication: OESOPHAGEAL CANCER METASTATIC
     Dates: start: 20110517, end: 20111115
  9. XELODA [Suspect]
     Dates: end: 20120226
  10. POTASSIUM CHLORIDE [Concomitant]
  11. LOMOTIL [Concomitant]
  12. DEXAMETHASONE [Concomitant]
  13. AVASTIN [Suspect]
     Dosage: LAST DOSE RECIEVED ON 14 FEB 2012
     Dates: end: 20120214
  14. COMPAZINE [Concomitant]
  15. PREDNISONE TAB [Concomitant]
  16. CITALOPRAM HYDROBROMIDE [Concomitant]
  17. MORPHINE SULFATE [Concomitant]
  18. HERCEPTIN [Suspect]
     Dosage: LAST DOSE RECIEVED ON 14 FEB 2012.
     Dates: end: 20120214
  19. XELODA [Suspect]
     Indication: OESOPHAGEAL CANCER METASTATIC
     Dates: start: 20110517, end: 20111129
  20. LISINOPRIL [Concomitant]
  21. HERCEPTIN [Suspect]
     Indication: OESOPHAGEAL CANCER METASTATIC
     Dosage: LAST DOSE RECIEVED ON 14 FEB 2012.
     Dates: start: 20110510, end: 20111115
  22. OXALIPLATIN [Suspect]
     Dates: end: 20120214
  23. METOPROLOL TARTRATE [Concomitant]
  24. DICYCLOMINE [Concomitant]
  25. METHYLPHENIDATE [Concomitant]
  26. ZOFRAN [Concomitant]
  27. OXYCODONE HCL [Concomitant]
  28. DECADRON PHOSPHATE [Concomitant]
  29. BENTYL [Concomitant]
  30. EMEND [Concomitant]

REACTIONS (8)
  - VOMITING [None]
  - ODYNOPHAGIA [None]
  - DEHYDRATION [None]
  - PNEUMOMEDIASTINUM [None]
  - NAUSEA [None]
  - DECREASED APPETITE [None]
  - DYSPNOEA [None]
  - PNEUMOTHORAX [None]
